FAERS Safety Report 9034081 (Version 1)
Quarter: 2013Q1

REPORT INFORMATION
  Report Type: Spontaneous
  Country: US (occurrence: US)
  Receive Date: 20130128
  Receipt Date: 20130128
  Transmission Date: 20140127
  Serious: Yes (Hospitalization)
  Sender: FDA-Public Use
  Company Number: US-AMGEN-USASP2012061621

PATIENT
  Age: 74 Year
  Sex: Female
  Weight: 68.48 kg

DRUGS (27)
  1. ENBREL [Suspect]
     Indication: PRODUCT USED FOR UNKNOWN INDICATION
     Dosage: 50 MG, QWK
     Route: 058
  2. COPPER [Concomitant]
     Dosage: 2 MG, UNK
  3. ZINC [Concomitant]
     Dosage: 30 MG, UNK
  4. CALCIUM MAGNESIUM [Concomitant]
     Dosage: UNK
  5. ALBUTEROL                          /00139501/ [Concomitant]
     Dosage: 0.5 %, UNK
  6. ATROVENT [Concomitant]
     Dosage: AER 18 MCG/AC
  7. BUDESONIDE [Concomitant]
     Dosage: 0.25 MG, UNK
  8. IPRATROPIUM [Concomitant]
     Dosage: UNK
  9. SIMVASTATIN [Concomitant]
     Dosage: 40 MG, UNK
  10. ALLEGRA [Concomitant]
     Dosage: 60 MG, UNK
  11. TYLENOL /00020001/ [Concomitant]
     Dosage: 500 MG, UNK
  12. MULTIVITAMIN                       /00097801/ [Concomitant]
     Dosage: UNK
  13. XALATAN [Concomitant]
     Dosage: SOLUTION 0.005 %, UNK
  14. FLONASE [Concomitant]
     Dosage: SPRAY 0.05 %, UNK
  15. DITROPAN [Concomitant]
     Dosage: 5 MG, UNK
  16. VITAMIN C                          /00008001/ [Concomitant]
     Dosage: 500 MG, SR
  17. VITAMIN B12                        /00056201/ [Concomitant]
     Dosage: 2500 MUG, UNK
  18. VITAMIN D /00107901/ [Concomitant]
     Dosage: 400 UNIT, UNK
  19. FIBER [Concomitant]
     Dosage: UNK
  20. METHOTREXATE [Concomitant]
     Dosage: 2.5 MG, UNK
  21. CELEBREX [Concomitant]
     Dosage: 400 MG, UNK
  22. FOLIC ACID [Concomitant]
     Dosage: UNK
  23. PREDNISONE [Concomitant]
     Dosage: SOLUTION 5MG/5ML
  24. QUESTRAN [Concomitant]
     Dosage: POW 4 G LITE
  25. DIGOXIN [Concomitant]
     Dosage: 0.125 MG, UNK
  26. ZANTAC [Concomitant]
     Dosage: 75 UNK, UNK
  27. FOSAMAX [Concomitant]
     Dosage: 10 MG, UNK

REACTIONS (1)
  - Urinary tract infection [Unknown]
